FAERS Safety Report 11167587 (Version 2)
Quarter: 2021Q1

REPORT INFORMATION
  Report Type: Report from Study
  Country: US (occurrence: US)
  Receive Date: 20150605
  Receipt Date: 20210224
  Transmission Date: 20210419
  Serious: Yes (Other)
  Sender: FDA-Public Use
  Company Number: US-CELGENEUS-USA-2014120061

PATIENT
  Age: 60 Year
  Sex: Female
  Weight: 88.53 kg

DRUGS (5)
  1. REVLIMID [Suspect]
     Active Substance: LENALIDOMIDE
     Indication: PLASMA CELL MYELOMA
     Dosage: 25 MILLIGRAM
     Route: 048
     Dates: start: 20120301
  2. VELCADE [Suspect]
     Active Substance: BORTEZOMIB
     Indication: PRODUCT USED FOR UNKNOWN INDICATION
     Route: 065
  3. REVLIMID [Suspect]
     Active Substance: LENALIDOMIDE
     Dosage: 25 MILLIGRAM
     Route: 048
     Dates: start: 20120626, end: 20140527
  4. DECADRON [Suspect]
     Active Substance: DEXAMETHASONE
     Indication: PLASMA CELL MYELOMA
     Dosage: 40 MILLIGRAM
     Route: 048
     Dates: start: 20120501
  5. DECADRON [Suspect]
     Active Substance: DEXAMETHASONE
     Dosage: PER DAY Q 7 DAYS
     Route: 048
     Dates: start: 20120626, end: 20140527

REACTIONS (2)
  - Pneumonia [Recovered/Resolved]
  - Abscess limb [Unknown]

NARRATIVE: CASE EVENT DATE: 20120624
